FAERS Safety Report 6724318-2 (Version None)
Quarter: 2010Q2

REPORT INFORMATION
  Report Type: 
  Country: None (occurrence: None)
  Receive Date: 20100513
  Receipt Date: 20100503
  Transmission Date: 20101027
  Serious: Yes (Death, Hospitalization)
  Sender: FDA-Public Use
  Company Number: CHPA2010US07877

PATIENT
  Age: 58 Year
  Sex: Male
  Weight: 82.086 kg

DRUGS (2)
  1. EXCEDRIN TENSION HEADACHE(NCH) [Suspect]
     Indication: CANCER PAIN
     Dosage: UNK, QD
     Route: 048
     Dates: start: 19881101, end: 19890301
  2. MORPHINE SULFATE [Concomitant]
     Indication: CANCER PAIN
     Route: 065

REACTIONS (4)
  - INTENTIONAL DRUG MISUSE [None]
  - MALIGNANT NEOPLASM PROGRESSION [None]
  - RENAL CANCER [None]
  - THERAPEUTIC RESPONSE UNEXPECTED [None]
